FAERS Safety Report 11388089 (Version 4)
Quarter: 2016Q2

REPORT INFORMATION
  Report Type: Spontaneous
  Country: JP (occurrence: JP)
  Receive Date: 20150817
  Receipt Date: 20160628
  Transmission Date: 20160815
  Serious: Yes (Other)
  Sender: FDA-Public Use
  Company Number: JP-GLAXOSMITHKLINE-JP2015JPN114376

PATIENT
  Sex: Female
  Weight: 43 kg

DRUGS (7)
  1. HEPSERA [Suspect]
     Active Substance: ADEFOVIR DIPIVOXIL
     Indication: CHRONIC HEPATITIS B
     Dosage: 10 MG, 1D
     Route: 048
     Dates: start: 20060726, end: 20141208
  2. ZEFIX [Suspect]
     Active Substance: LAMIVUDINE
     Indication: CHRONIC HEPATITIS B
     Dosage: 100 MG, 1D
     Route: 048
     Dates: start: 20060726, end: 20141208
  3. SENNA LEAF [Concomitant]
     Active Substance: SENNA LEAF
     Dosage: 1 G, 1D
  4. FAMOTIDINE. [Concomitant]
     Active Substance: FAMOTIDINE
     Dosage: 10 MG, 1D
  5. TRIAZOLAM. [Concomitant]
     Active Substance: TRIAZOLAM
     Dosage: 0.125 MG, 1D
  6. CANDESARTAN [Concomitant]
     Active Substance: CANDESARTAN
     Dosage: 2 MG, 1D
  7. ASCORBIC ACID/CALCIUM PANTOTHENATE [Concomitant]
     Dosage: UNK

REACTIONS (19)
  - Renal tubular disorder [Unknown]
  - Hypokalaemia [Not Recovered/Not Resolved]
  - Pain in extremity [Not Recovered/Not Resolved]
  - Fanconi syndrome acquired [Recovering/Resolving]
  - Renal impairment [Recovering/Resolving]
  - Vitamin D decreased [Unknown]
  - Osteomalacia [Not Recovered/Not Resolved]
  - Hypophosphataemia [Not Recovered/Not Resolved]
  - Glucose urine present [Not Recovered/Not Resolved]
  - Blood alkaline phosphatase increased [Recovering/Resolving]
  - Femoral neck fracture [Not Recovered/Not Resolved]
  - Acquired aminoaciduria [Unknown]
  - Muscular weakness [Not Recovered/Not Resolved]
  - Hypocalcaemia [Unknown]
  - Blood parathyroid hormone increased [Unknown]
  - Bone density decreased [Unknown]
  - Metabolic acidosis [Unknown]
  - Hypouricaemia [Not Recovered/Not Resolved]
  - Osteoporosis [Recovering/Resolving]
